FAERS Safety Report 10656491 (Version 1)
Quarter: 2014Q4

REPORT INFORMATION
  Report Type: Spontaneous
  Country: FR (occurrence: FR)
  Receive Date: 20141216
  Receipt Date: 20141216
  Transmission Date: 20150529
  Serious: Yes (Hospitalization, Other)
  Sender: FDA-Public Use
  Company Number: FR-BAXTER-2014BAX073397

PATIENT
  Age: 72 Year
  Sex: Female

DRUGS (23)
  1. ENDOXAN 1000 MG, POUDRE POUR SOLUTION INJECTABLE [Suspect]
     Active Substance: CYCLOPHOSPHAMIDE
     Indication: ACUTE LYMPHOCYTIC LEUKAEMIA
     Route: 042
     Dates: start: 20141118
  2. ENDOXAN 1000 MG, POUDRE POUR SOLUTION INJECTABLE [Suspect]
     Active Substance: CYCLOPHOSPHAMIDE
     Route: 042
     Dates: start: 20141120
  3. ARACYTINE [Suspect]
     Active Substance: CYTARABINE
     Route: 037
     Dates: start: 20141106, end: 20141106
  4. VANCOMYCINE [Suspect]
     Active Substance: VANCOMYCIN
     Indication: PRODUCT USED FOR UNKNOWN INDICATION
     Route: 065
     Dates: start: 20141116
  5. NEBIVOLOL [Concomitant]
     Active Substance: NEBIVOLOL
     Indication: ADJUVANT THERAPY
     Route: 065
  6. ENDOXAN 1000 MG, POUDRE POUR SOLUTION INJECTABLE [Suspect]
     Active Substance: CYCLOPHOSPHAMIDE
     Route: 042
     Dates: start: 20141119
  7. METHOTREXATE [Suspect]
     Active Substance: METHOTREXATE
     Route: 037
     Dates: start: 20141029, end: 20141029
  8. ROCEPHINE [Suspect]
     Active Substance: CEFTRIAXONE SODIUM
     Indication: PRODUCT USED FOR UNKNOWN INDICATION
     Route: 065
     Dates: start: 20141114
  9. ARACYTINE [Suspect]
     Active Substance: CYTARABINE
     Route: 065
     Dates: start: 20141120
  10. ARACYTINE [Suspect]
     Active Substance: CYTARABINE
     Route: 037
     Dates: start: 20141112, end: 20141112
  11. ZAVEDOS [Suspect]
     Active Substance: IDARUBICIN
     Route: 042
     Dates: start: 20141103, end: 20141103
  12. METHOTREXATE [Suspect]
     Active Substance: METHOTREXATE
     Route: 037
     Dates: start: 20141106, end: 20141106
  13. ZAVEDOS [Suspect]
     Active Substance: IDARUBICIN
     Route: 042
     Dates: start: 20141109, end: 20141109
  14. VINCRISTINE [Suspect]
     Active Substance: VINCRISTINE
     Route: 042
     Dates: start: 20141102, end: 20141102
  15. ZELITREX [Suspect]
     Active Substance: VALACYCLOVIR HYDROCHLORIDE
     Indication: PRODUCT USED FOR UNKNOWN INDICATION
     Route: 065
     Dates: start: 20141023
  16. ARACYTINE [Suspect]
     Active Substance: CYTARABINE
     Indication: ACUTE LYMPHOCYTIC LEUKAEMIA
     Route: 042
     Dates: start: 20141119, end: 20141119
  17. ARACYTINE [Suspect]
     Active Substance: CYTARABINE
     Route: 065
     Dates: start: 20141121
  18. ARACYTINE [Suspect]
     Active Substance: CYTARABINE
     Route: 065
     Dates: start: 20141122
  19. METHOTREXATE [Suspect]
     Active Substance: METHOTREXATE
     Indication: ACUTE LYMPHOCYTIC LEUKAEMIA
     Route: 037
     Dates: start: 20141113, end: 20141113
  20. VINCRISTINE [Suspect]
     Active Substance: VINCRISTINE
     Indication: ACUTE LYMPHOCYTIC LEUKAEMIA
     Route: 042
     Dates: start: 20141109, end: 20141109
  21. ZAVEDOS [Suspect]
     Active Substance: IDARUBICIN
     Indication: ACUTE LYMPHOCYTIC LEUKAEMIA
     Route: 042
     Dates: start: 20141110, end: 20141110
  22. ZAVEDOS [Suspect]
     Active Substance: IDARUBICIN
     Route: 042
     Dates: start: 20141102, end: 20141102
  23. INEXIUM [Concomitant]
     Active Substance: ESOMEPRAZOLE
     Indication: ADJUVANT THERAPY
     Route: 065

REACTIONS (6)
  - Aphasia [Unknown]
  - Dysarthria [Recovered/Resolved]
  - Facial paresis [Recovered/Resolved]
  - Confusional state [Recovered/Resolved]
  - Monoparesis [Recovered/Resolved]
  - Metastases to meninges [Unknown]

NARRATIVE: CASE EVENT DATE: 20141119
